FAERS Safety Report 22203786 (Version 1)
Quarter: 2023Q2

REPORT INFORMATION
  Report Type: Spontaneous
  Country: RO (occurrence: RO)
  Receive Date: 20230412
  Receipt Date: 20230412
  Transmission Date: 20230721
  Serious: Yes (Life-Threatening, Other)
  Sender: FDA-Public Use
  Company Number: RO-AMGEN-ROUSP2023058520

PATIENT
  Age: 50 Year
  Sex: Male

DRUGS (7)
  1. LEUCOVORIN [Suspect]
     Active Substance: LEUCOVORIN
     Indication: Colorectal cancer metastatic
     Dosage: UNK UNK, Q2WK
     Route: 042
     Dates: start: 20220309
  2. LEUCOVORIN [Suspect]
     Active Substance: LEUCOVORIN
     Dosage: UNK UNK, Q2WK
     Route: 042
     Dates: start: 202212
  3. OXALIPLATIN [Suspect]
     Active Substance: OXALIPLATIN
     Indication: Colorectal cancer metastatic
     Dosage: UNK, Q2WK
     Route: 042
     Dates: start: 20220309
  4. FLUOROURACIL [Suspect]
     Active Substance: FLUOROURACIL
     Indication: Colorectal cancer metastatic
     Dosage: UNK, Q2WK
     Route: 042
     Dates: start: 202212
  5. FLUOROURACIL [Suspect]
     Active Substance: FLUOROURACIL
     Dosage: UNK, Q2WK
     Route: 042
     Dates: start: 20220309
  6. VECTIBIX [Suspect]
     Active Substance: PANITUMUMAB
     Indication: Colorectal cancer metastatic
     Dosage: UNK, Q2WK
     Route: 042
     Dates: start: 20220309
  7. VECTIBIX [Suspect]
     Active Substance: PANITUMUMAB
     Dosage: UNK UNK, Q2WK
     Route: 042
     Dates: start: 202212

REACTIONS (4)
  - Febrile neutropenia [None]
  - Peripheral sensory neuropathy [None]
  - Hypertrichosis [None]
  - Rash [None]
